FAERS Safety Report 9821345 (Version 2)
Quarter: 2014Q1

REPORT INFORMATION
  Report Type: Spontaneous
  Country: US (occurrence: None)
  Receive Date: 20140114
  Receipt Date: 20140220
  Transmission Date: 20141002
  Serious: Yes (Hospitalization)
  Sender: FDA-Public Use
  Company Number: SP07407

PATIENT
  Age: 76 Year
  Sex: Female
  Weight: 40.82 kg

DRUGS (1)
  1. XIFAXAN [Suspect]
     Indication: DIARRHOEA
     Dosage: 1100 MG (550 MG, 2 IN 1 D), ORAL
     Route: 048
     Dates: start: 20130617, end: 2013

REACTIONS (3)
  - Nausea [None]
  - Vomiting [None]
  - Gastroenteritis viral [None]
